FAERS Safety Report 7428821-1 (Version None)
Quarter: 2011Q2

REPORT INFORMATION
  Report Type: 
  Country: None (occurrence: None)
  Receive Date: 20110421
  Receipt Date: 20110419
  Transmission Date: 20111010
  Serious: Yes (Other)
  Sender: FDA-Public Use
  Company Number: BR-PFIZER INC-2011027618

PATIENT
  Age: 38 Year
  Sex: Female
  Weight: 62 kg

DRUGS (3)
  1. CHAMPIX [Suspect]
     Indication: TOBACCO USER
     Dosage: UNK
     Route: 048
     Dates: start: 20090101, end: 20090101
  2. CHAMPIX [Suspect]
     Indication: SMOKING CESSATION THERAPY
     Dosage: UNK MG, 2X/DAY
     Route: 048
     Dates: start: 20110317, end: 20110101
  3. CHAMPIX [Suspect]
     Dosage: 1 MG, 2X/DAY (EVERY 12 HOURS)
     Route: 048
     Dates: start: 20110301

REACTIONS (9)
  - HEADACHE [None]
  - RETCHING [None]
  - POOR QUALITY SLEEP [None]
  - INSOMNIA [None]
  - HUNGER [None]
  - NIGHTMARE [None]
  - FEAR [None]
  - WEIGHT FLUCTUATION [None]
  - ABDOMINAL PAIN UPPER [None]
